FAERS Safety Report 10331089 (Version 3)
Quarter: 2016Q2

REPORT INFORMATION
  Report Type: Spontaneous
  Country: US (occurrence: US)
  Receive Date: 20120817
  Receipt Date: 20160406
  Transmission Date: 20160815
  Serious: Yes (Other)
  Sender: FDA-Public Use
  Company Number: ADR-2012-00793

PATIENT
  Age: 51 Year
  Sex: Male

DRUGS (13)
  1. BUPIVACAINE. [Suspect]
     Active Substance: BUPIVACAINE
     Dosage: 6.3 MG/DAY
     Route: 037
  2. BUPIVACAINE. [Suspect]
     Active Substance: BUPIVACAINE
     Dosage: 4.9 MG/DAY
     Route: 037
  3. CLONIDINE. [Suspect]
     Active Substance: CLONIDINE
     Dosage: 220 MCG/DAY
     Route: 037
  4. BUPIVACAINE. [Suspect]
     Active Substance: BUPIVACAINE
     Dosage: 5.5 MG/DAY
     Route: 037
  5. CLONIDINE. [Suspect]
     Active Substance: CLONIDINE
     Dosage: 255 MCG/DAY
     Route: 037
  6. BACLOFEN. [Suspect]
     Active Substance: BACLOFEN
     Indication: PAIN
     Dosage: 175 MCG/DAY
     Route: 037
  7. DILAUDID [Suspect]
     Active Substance: HYDROMORPHONE HYDROCHLORIDE
     Dosage: 5.6 MG/DAY
     Route: 037
  8. BACLOFEN. [Suspect]
     Active Substance: BACLOFEN
     Indication: PAIN
     Dosage: 63 MCG/DAY
     Route: 037
  9. CLONIDINE. [Suspect]
     Active Substance: CLONIDINE
     Dosage: 560 MCG/DAY
     Route: 037
  10. BACLOFEN. [Suspect]
     Active Substance: BACLOFEN
     Indication: PAIN
     Dosage: 55 MCG/DAY
     Route: 037
  11. MORPHINE [Suspect]
     Active Substance: MORPHINE
     Dosage: 14 MG/DAY
     Route: 037
  12. BUPIVACAINE. [Suspect]
     Active Substance: BUPIVACAINE
     Dosage: 5.3 MG/DAY
     Route: 037
  13. MORPHINE [Suspect]
     Active Substance: MORPHINE
     Dosage: 12 MG/DAY
     Route: 037

REACTIONS (8)
  - Dizziness [Unknown]
  - Pain [Unknown]
  - Overdose [Unknown]
  - Therapeutic response decreased [Unknown]
  - Therapeutic response unexpected [Unknown]
  - Pain in extremity [Unknown]
  - Hypoaesthesia [Unknown]
  - Drug withdrawal syndrome [Unknown]
